FAERS Safety Report 4843301-5 (Version None)
Quarter: 2005Q4

REPORT INFORMATION
  Report Type: 
  Country: None (occurrence: None)
  Receive Date: 20051201
  Receipt Date: 20011204
  Transmission Date: 20060501
  Serious: Yes (Hospitalization, Other)
  Sender: FDA-Public Use
  Company Number: JP-MERCK-01120632

PATIENT
  Age: 72 Year
  Sex: Female

DRUGS (3)
  1. FOSAMAX [Suspect]
     Indication: OSTEOPOROSIS
     Route: 048
     Dates: start: 20010914, end: 20011108
  2. LOXONIN [Concomitant]
     Indication: BACK PAIN
     Route: 048
     Dates: start: 20010910, end: 20011108
  3. RANITAC [Concomitant]
     Indication: ABDOMINAL PAIN UPPER
     Route: 048
     Dates: start: 20010910, end: 20011108

REACTIONS (1)
  - INTESTINAL OBSTRUCTION [None]
